FAERS Safety Report 6440508-0 (Version None)
Quarter: 2009Q4

REPORT INFORMATION
  Report Type: 
  Country: None (occurrence: None)
  Receive Date: 20091113
  Receipt Date: 20091102
  Transmission Date: 20100525
  Serious: Yes (Congenital Anomaly, Other)
  Sender: FDA-Public Use
  Company Number: -BAUSCH-2009BL005550

PATIENT
  Sex: Female
  Weight: 1 kg

DRUGS (5)
  1. PREDNISOLONE [Suspect]
     Indication: MICROSCOPIC POLYANGIITIS
     Route: 064
  2. BETAMETHASONE [Suspect]
     Indication: MICROSCOPIC POLYANGIITIS
  3. CO-TRIMOXAZOLE [Suspect]
     Indication: PROPHYLAXIS
     Route: 064
  4. CYCLOPHOSPHAMIDE [Suspect]
     Indication: MICROSCOPIC POLYANGIITIS
     Route: 064
  5. METHYLPREDNISOLONE 4MG TAB [Suspect]
     Indication: DRUG USE FOR UNKNOWN INDICATION
     Route: 064

REACTIONS (5)
  - HAEMOGLOBIN DECREASED [None]
  - MATERNAL DRUGS AFFECTING FOETUS [None]
  - PLATELET COUNT INCREASED [None]
  - SOLITARY KIDNEY [None]
  - WHITE BLOOD CELL COUNT INCREASED [None]
